FAERS Safety Report 4278869-3 (Version None)
Quarter: 2004Q1

REPORT INFORMATION
  Report Type: 
  Country: None (occurrence: None)
  Receive Date: 20040123
  Receipt Date: 20040123
  Transmission Date: 20041129
  Serious: No
  Sender: FDA-Public Use
  Company Number: None

PATIENT
  Age: 66 Year
  Sex: Male
  Weight: 79.8 kg

DRUGS (4)
  1. SOLU-MEDROL [Suspect]
     Indication: BRONCHITIS
     Dosage: 125 MG EVERY 6 HOURS INTRAVENOUS
     Route: 042
     Dates: start: 20040115, end: 20040118
  2. XOPENEX [Concomitant]
  3. ATROVENT [Concomitant]
  4. LEVAQUIN [Concomitant]

REACTIONS (1)
  - HYPERGLYCAEMIA [None]
